FAERS Safety Report 11201149 (Version 5)
Quarter: 2019Q4

REPORT INFORMATION
  Report Type: Report from Study
  Country: US (occurrence: US)
  Receive Date: 20150619
  Receipt Date: 20191115
  Transmission Date: 20200122
  Serious: Yes (Life-Threatening, Hospitalization)
  Sender: FDA-Public Use
  Company Number: US-ROCHE-1593783

PATIENT
  Age: 81 Year
  Sex: Male
  Weight: 78.4 kg

DRUGS (6)
  1. VEMURAFENIB. [Suspect]
     Active Substance: VEMURAFENIB
     Dosage: LAST DOSE ADMINISTERED ON 09/JUN/2015.
     Route: 048
     Dates: start: 20150519
  2. IRINOTECAN [Suspect]
     Active Substance: IRINOTECAN
     Indication: COLORECTAL CANCER
     Dosage: CYCLE 3; DAY 18
     Route: 065
     Dates: start: 20150313
  3. VEMURAFENIB. [Suspect]
     Active Substance: VEMURAFENIB
     Indication: COLORECTAL CANCER
     Dosage: CYCLE 3; DAY 18
     Route: 048
     Dates: start: 20150313
  4. CETUXIMAB. [Suspect]
     Active Substance: CETUXIMAB
     Dosage: LAST DOSE ADMINISTERED ON 02/JUN/2015.
     Route: 065
     Dates: start: 20150519
  5. CETUXIMAB. [Suspect]
     Active Substance: CETUXIMAB
     Indication: COLORECTAL CANCER
     Dosage: CYCLE 3; DAY 18
     Route: 065
     Dates: start: 20150313
  6. IRINOTECAN [Suspect]
     Active Substance: IRINOTECAN
     Dosage: LAST DOSE ADMINISTERED ON 02/JUN/2015.
     Route: 065
     Dates: start: 20150602

REACTIONS (6)
  - Neutrophil count decreased [Recovered/Resolved]
  - Urinary tract infection [Not Recovered/Not Resolved]
  - White blood cell count decreased [Recovered/Resolved]
  - Back pain [Recovered/Resolved]
  - Vomiting [Unknown]
  - Blood alkaline phosphatase increased [Unknown]

NARRATIVE: CASE EVENT DATE: 20150609
